FAERS Safety Report 22318461 (Version 7)
Quarter: 2023Q4

REPORT INFORMATION
  Report Type: Report from Study
  Country: CA (occurrence: CA)
  Receive Date: 20230515
  Receipt Date: 20231220
  Transmission Date: 20240110
  Serious: Yes (Other)
  Sender: FDA-Public Use
  Company Number: CA-JNJFOC-20230523483

PATIENT
  Age: 39 Year
  Sex: Female
  Weight: 95.34 kg

DRUGS (1)
  1. SIMPONI [Suspect]
     Active Substance: GOLIMUMAB
     Indication: Ankylosing spondylitis
     Dosage: 13-JUN-2016
     Route: 041
     Dates: start: 20160125

REACTIONS (6)
  - Bladder repair [Recovered/Resolved]
  - Cyst removal [Recovered/Resolved]
  - Nephrolithiasis [Recovered/Resolved]
  - Urinary tract infection [Unknown]
  - Cystitis [Recovering/Resolving]
  - Wound [Recovered/Resolved]

NARRATIVE: CASE EVENT DATE: 20230418
